FAERS Safety Report 9697947 (Version 1)
Quarter: 2013Q4

REPORT INFORMATION
  Report Type: Spontaneous
  Country: DK (occurrence: DK)
  Receive Date: 20131120
  Receipt Date: 20131120
  Transmission Date: 20140711
  Serious: Yes (Other)
  Sender: FDA-Public Use
  Company Number: DK-ASTRAZENECA-2013SE82799

PATIENT
  Age: 6257 Day
  Sex: Male

DRUGS (2)
  1. XYLOCAINE [Suspect]
     Indication: LOCAL ANAESTHESIA
     Dosage: 10MG/ML+5MIKROGRAM/ML
     Dates: start: 20130228
  2. SEPTANEST [Suspect]
     Indication: LOCAL ANAESTHESIA
     Dosage: 40MG/ML+5MIKROGRAM/ML
     Dates: start: 20130228

REACTIONS (2)
  - Aggression [Recovered/Resolved]
  - Altered state of consciousness [Recovered/Resolved]
